FAERS Safety Report 6564843-0 (Version None)
Quarter: 2010Q1

REPORT INFORMATION
  Report Type: 
  Country: None (occurrence: None)
  Receive Date: 20100201
  Receipt Date: 20100120
  Transmission Date: 20100710
  Serious: Yes (Other)
  Sender: FDA-Public Use
  Company Number: BR-PFIZER INC-2009314107

PATIENT
  Sex: Male

DRUGS (1)
  1. TERRAMYCIN V CAP [Suspect]
     Indication: SCLERITIS
     Dosage: UNK
     Route: 047
     Dates: start: 20091201

REACTIONS (4)
  - SCLERITIS [None]
  - SENSATION OF HEAVINESS [None]
  - VISION BLURRED [None]
  - VISUAL IMPAIRMENT [None]
